FAERS Safety Report 24438893 (Version 4)
Quarter: 2024Q4

REPORT INFORMATION
  Report Type: Report from Study
  Country: US (occurrence: US)
  Receive Date: 20241015
  Receipt Date: 20241211
  Transmission Date: 20250115
  Serious: Yes (Hospitalization, Other)
  Sender: ABBVIE
  Company Number: US-ABBVIE-5955854

PATIENT
  Age: 66 Year
  Sex: Female
  Weight: 98 kg

DRUGS (9)
  1. LINZESS [Suspect]
     Active Substance: LINACLOTIDE
     Indication: Constipation
     Dosage: FORM STRENGTH: 145 MICROGRAM
     Route: 048
     Dates: start: 2021
  2. LAMICTAL [Concomitant]
     Active Substance: LAMOTRIGINE
     Indication: Major depression
     Dosage: 150 MG
  3. LYRICA [Concomitant]
     Active Substance: PREGABALIN
     Indication: Neuropathy peripheral
     Dosage: 100 MG
  4. OXYCODONE [Concomitant]
     Active Substance: OXYCODONE
     Indication: Arthritis
     Dosage: 10/325 MG
  5. REMERON [Concomitant]
     Active Substance: MIRTAZAPINE
     Indication: Major depression
     Dosage: 45 MG
  6. CYMBALTA [Concomitant]
     Active Substance: DULOXETINE HYDROCHLORIDE
     Indication: Major depression
  7. TRAZODONE [Concomitant]
     Active Substance: TRAZODONE HYDROCHLORIDE
     Indication: Sleep disorder
     Dosage: 100 MG
  8. XANAX [Concomitant]
     Active Substance: ALPRAZOLAM
     Indication: Major depression
     Dosage: 0.25 MG
  9. BUPROPION HYDROCHLORIDE [Concomitant]
     Active Substance: BUPROPION HYDROCHLORIDE
     Indication: Major depression
     Dosage: 150 MG

REACTIONS (11)
  - Thrombosis [Recovered/Resolved]
  - Thrombosis [Recovered/Resolved]
  - Osteoarthritis [Recovered/Resolved]
  - Pain [Not Recovered/Not Resolved]
  - Osteoarthritis [Recovered/Resolved]
  - Peripheral swelling [Recovered/Resolved]
  - Peripheral swelling [Unknown]
  - Peripheral swelling [Recovered/Resolved]
  - Bone disorder [Unknown]
  - Thrombosis [Recovered/Resolved]
  - Thrombosis [Recovering/Resolving]

NARRATIVE: CASE EVENT DATE: 20220501
